FAERS Safety Report 9633784 (Version 2)
Quarter: 2013Q4

REPORT INFORMATION
  Report Type: Spontaneous
  Country: ES (occurrence: ES)
  Receive Date: 20131021
  Receipt Date: 20131021
  Transmission Date: 20140711
  Serious: Yes (Other)
  Sender: FDA-Public Use
  Company Number: ES-SA-THYM-1004033

PATIENT
  Age: 55 Year
  Sex: Female
  Weight: 74 kg

DRUGS (3)
  1. THYMOGLOBULIN [Suspect]
     Indication: STEM CELL TRANSPLANT
     Dosage: STRENGTH: 5 MG/ML
     Route: 042
     Dates: start: 20110723, end: 20110726
  2. CYCLOPHOSPHAMIDE [Concomitant]
     Indication: STEM CELL TRANSPLANT
     Route: 042
     Dates: start: 20110722, end: 20110723
  3. FLUDARABINE [Concomitant]
     Indication: STEM CELL TRANSPLANT
     Route: 042
     Dates: start: 20110722, end: 20110725

REACTIONS (3)
  - Pulmonary toxicity [Recovered/Resolved]
  - Gastrointestinal toxicity [Recovered/Resolved]
  - Toxicity to various agents [Recovered/Resolved]
